FAERS Safety Report 9229641 (Version 3)
Quarter: 2013Q2

REPORT INFORMATION
  Report Type: Spontaneous
  Country: US (occurrence: US)
  Receive Date: 20130415
  Receipt Date: 20130515
  Transmission Date: 20140414
  Serious: Yes (Other)
  Sender: FDA-Public Use
  Company Number: US-AMGEN-USASP2013025126

PATIENT
  Age: 50 Year
  Sex: Female
  Weight: 53 kg

DRUGS (6)
  1. EPOGEN [Suspect]
     Indication: RENAL FAILURE CHRONIC
     Dosage: 18000 UNIT, 2 TIMES/WK
     Route: 058
     Dates: start: 20130129, end: 20130401
  2. PHOSLO [Concomitant]
     Indication: HYPERPARATHYROIDISM SECONDARY
     Dosage: 667 MG, TID
     Route: 048
     Dates: start: 20120920
  3. COREG [Concomitant]
     Indication: HYPERTENSION
     Dosage: 125 MG, BID
     Route: 048
     Dates: start: 20110130
  4. PREDNISONE [Concomitant]
     Indication: SYSTEMIC LUPUS ERYTHEMATOSUS
     Dosage: 2.5 MG, QD
     Route: 048
     Dates: start: 20111227
  5. ZOCOR [Concomitant]
     Indication: HYPERCHOLESTEROLAEMIA
     Dosage: 20 MG, QD
     Route: 048
     Dates: start: 20121015
  6. RENAGEL                            /01459901/ [Concomitant]
     Indication: HYPERPARATHYROIDISM SECONDARY
     Dosage: 1600 MG, TID
     Route: 048
     Dates: start: 20121015

REACTIONS (3)
  - Haemoglobin decreased [Not Recovered/Not Resolved]
  - Therapeutic response decreased [Not Recovered/Not Resolved]
  - Asthenia [Unknown]
